FAERS Safety Report 9660982 (Version 2)
Quarter: 2014Q1

REPORT INFORMATION
  Report Type: Spontaneous
  Country: CN (occurrence: CN)
  Receive Date: 20131031
  Receipt Date: 20140128
  Transmission Date: 20141002
  Serious: Yes (Death, Other)
  Sender: FDA-Public Use
  Company Number: CN-NAPPMUNDI-GBR-2013-0016217

PATIENT
  Sex: Male

DRUGS (4)
  1. OXYCONTIN TABLETS [Suspect]
     Indication: CANCER PAIN
     Dosage: 120 MG, Q12H
     Route: 048
  2. OXYCONTIN TABLETS [Suspect]
     Dosage: 80 MG, Q12H
     Route: 048
  3. OXYCONTIN TABLETS [Suspect]
     Dosage: 120 MG, Q12H
     Route: 048
  4. OXYCONTIN TABLETS [Suspect]
     Dosage: 80 MG, Q12H
     Route: 048

REACTIONS (2)
  - Delirium [Unknown]
  - Malignant neoplasm progression [Fatal]
